FAERS Safety Report 6161995-1 (Version None)
Quarter: 2009Q2

REPORT INFORMATION
  Report Type: 
  Country: None (occurrence: None)
  Receive Date: 20090421
  Receipt Date: 20090415
  Transmission Date: 20091009
  Serious: Yes (Hospitalization)
  Sender: FDA-Public Use
  Company Number: JP-MERCK-0904USA02860

PATIENT
  Sex: Male

DRUGS (1)
  1. HYZAAR [Suspect]
     Route: 048
     Dates: start: 20090315

REACTIONS (1)
  - INTERSTITIAL LUNG DISEASE [None]
